FAERS Safety Report 8529145-1 (Version None)
Quarter: 2012Q3

REPORT INFORMATION
  Report Type: 
  Country: None (occurrence: None)
  Receive Date: 20120723
  Receipt Date: 20120718
  Transmission Date: 20120928
  Serious: Yes (Hospitalization)
  Sender: FDA-Public Use
  Company Number: US-AMGEN-USASP2011024979

PATIENT
  Age: 66 Year
  Sex: Female
  Weight: 65.306 kg

DRUGS (3)
  1. ENBREL [Suspect]
     Indication: RHEUMATOID ARTHRITIS
     Dosage: 50 MG, QWK
     Route: 058
     Dates: start: 20021201, end: 20120601
  2. ENBREL [Suspect]
     Indication: OSTEOPOROSIS
     Dosage: 50 MG, QWK
     Dates: start: 20000522
  3. PREDNISONE [Suspect]
     Dosage: UNK

REACTIONS (12)
  - PELVIC FRACTURE [None]
  - BACK PAIN [None]
  - RESPIRATORY TRACT CONGESTION [None]
  - LACERATION [None]
  - BLOOD POTASSIUM INCREASED [None]
  - FALL [None]
  - PYREXIA [None]
  - FOOT DEFORMITY [None]
  - CYSTITIS [None]
  - PNEUMONIA [None]
  - LOCALISED INFECTION [None]
  - BLOOD MAGNESIUM DECREASED [None]
